FAERS Safety Report 7719216-1 (Version None)
Quarter: 2011Q3

REPORT INFORMATION
  Report Type: 
  Country: None (occurrence: None)
  Receive Date: 20110830
  Receipt Date: 20110825
  Transmission Date: 20111222
  Serious: Yes (Other)
  Sender: FDA-Public Use
  Company Number: US-PFIZER INC-2011143926

PATIENT
  Sex: Female

DRUGS (4)
  1. JANUVIA [Concomitant]
     Indication: DIABETES MELLITUS
     Dosage: UNK
     Dates: start: 20020101
  2. RAMIPRIL [Concomitant]
     Indication: HYPERTENSION
     Dosage: UNK
     Dates: start: 20020101
  3. CHANTIX [Suspect]
     Indication: SMOKING CESSATION THERAPY
     Dosage: UNK
     Dates: start: 20080401, end: 20090601
  4. HYDROCHLOROTHIAZIDE [Concomitant]
     Dosage: UNK
     Dates: start: 20020101

REACTIONS (6)
  - SUICIDAL IDEATION [None]
  - PANIC ATTACK [None]
  - ANXIETY [None]
  - DEPRESSION [None]
  - MENTAL DISORDER [None]
  - AGGRESSION [None]
